FAERS Safety Report 15083290 (Version 2)
Quarter: 2019Q2

REPORT INFORMATION
  Report Type: Spontaneous
  Country: FR (occurrence: FR)
  Receive Date: 20180628
  Receipt Date: 20190412
  Transmission Date: 20190711
  Serious: Yes (Other)
  Sender: FDA-Public Use
  Company Number: FR-ELI_LILLY_AND_COMPANY-FR201806010419

PATIENT
  Sex: Male
  Weight: 60 kg

DRUGS (1)
  1. TALTZ [Suspect]
     Active Substance: IXEKIZUMAB
     Indication: PSORIASIS
     Dosage: UNK UNK, UNKNOWN (2 INJECTIONS)
     Route: 058
     Dates: start: 20180502, end: 20180517

REACTIONS (8)
  - Laryngeal oedema [Recovered/Resolved]
  - Swelling face [Recovered/Resolved]
  - Liver injury [Recovered/Resolved]
  - Asphyxia [Recovered/Resolved]
  - Arthralgia [Recovered/Resolved]
  - Gamma-glutamyltransferase increased [Unknown]
  - Monoclonal immunoglobulin present [Recovered/Resolved]
  - Asthenia [Unknown]

NARRATIVE: CASE EVENT DATE: 20180508
